FAERS Safety Report 20028832 (Version 1)
Quarter: 2021Q4

REPORT INFORMATION
  Report Type: Spontaneous
  Country: US (occurrence: None)
  Receive Date: 20211102
  Receipt Date: 20211102
  Transmission Date: 20220303
  Serious: Yes (Hospitalization)
  Sender: FDA-Public Use
  Company Number: None

PATIENT
  Age: 61 Year
  Sex: Female

DRUGS (11)
  1. SPRAVATO [Suspect]
     Active Substance: ESKETAMINE
     Indication: Major depression
     Dosage: FREQUENCY : TWICE A DAY;?
     Route: 048
     Dates: start: 20211022
  2. HYDROXYZINE HYDROCHLORIDE [Concomitant]
     Active Substance: HYDROXYZINE HYDROCHLORIDE
  3. LORAZEPAM [Concomitant]
     Active Substance: LORAZEPAM
  4. METOPROLOL [Concomitant]
     Active Substance: METOPROLOL
  5. MIRTAZAPINE [Concomitant]
     Active Substance: MIRTAZAPINE
  6. MYRBETRIQ [Concomitant]
     Active Substance: MIRABEGRON
  7. NICOTINE POL [Concomitant]
  8. OLANZAPINE [Concomitant]
     Active Substance: OLANZAPINE
  9. ONDANSETRON [Concomitant]
     Active Substance: ONDANSETRON
  10. PREGALIN [Concomitant]
  11. TRAZODONE [Concomitant]
     Active Substance: TRAZODONE HYDROCHLORIDE

REACTIONS (2)
  - Intentional overdose [None]
  - Therapy cessation [None]

NARRATIVE: CASE EVENT DATE: 20211022
